FAERS Safety Report 5132038-3 (Version None)
Quarter: 2006Q4

REPORT INFORMATION
  Report Type: 
  Country: None (occurrence: None)
  Receive Date: 20061017
  Receipt Date: 20061005
  Transmission Date: 20070319
  Serious: Yes (Hospitalization)
  Sender: FDA-Public Use
  Company Number: 2006120367

PATIENT
  Age: 48 Year
  Sex: Female

DRUGS (10)
  1. SUTENT [Suspect]
     Indication: BREAST CANCER
     Dosage: 37.5 MG (37.5 MG, 1 IN 1 D), ORAL
     Route: 048
     Dates: start: 20060816, end: 20060914
  2. SUTENT [Suspect]
     Indication: BREAST CANCER
     Dosage: 37.5 MG (37.5 MG, 1 IN 1 D), ORAL
     Route: 048
     Dates: start: 20060920, end: 20060927
  3. ERYTHROPOIETIN (ERYTHROPOIETIN) [Concomitant]
  4. CELEBREX [Concomitant]
  5. PREDNISONE TAB [Concomitant]
  6. ACCUPRIL [Concomitant]
  7. TOPROL-XL [Concomitant]
  8. IRON (IRON) [Concomitant]
  9. OXYCONTIN [Concomitant]
  10. OXYCODONE HCL [Concomitant]

REACTIONS (14)
  - ABASIA [None]
  - BLOOD SODIUM DECREASED [None]
  - BLOOD UREA INCREASED [None]
  - BRAIN NATRIURETIC PEPTIDE INCREASED [None]
  - C-REACTIVE PROTEIN INCREASED [None]
  - COUGH [None]
  - DIARRHOEA [None]
  - DYSPNOEA [None]
  - HYPOXIA [None]
  - NAUSEA [None]
  - PROTEIN S INCREASED [None]
  - RED BLOOD CELL SEDIMENTATION RATE INCREASED [None]
  - STOMATITIS [None]
  - VOMITING [None]
